FAERS Safety Report 9467794 (Version 2)
Quarter: 2013Q3

REPORT INFORMATION
  Report Type: Spontaneous
  Country: CN (occurrence: CN)
  Receive Date: 20130821
  Receipt Date: 20130927
  Transmission Date: 20140515
  Serious: Yes (Other)
  Sender: FDA-Public Use
  Company Number: CN-JNJFOC-20130806160

PATIENT
  Sex: 0

DRUGS (5)
  1. DOXORUBICIN HYDROCHLORIDE [Suspect]
     Indication: PLASMA CELL MYELOMA
     Route: 042
  2. VINCRISTINE [Suspect]
     Indication: PLASMA CELL MYELOMA
     Route: 065
  3. DEXAMETHASONE [Suspect]
     Indication: PLASMA CELL MYELOMA
     Dosage: D1-4; 4 WEEKS CONSTITUTED A CYCLE, 2 CYCLES IN TOTAL
     Route: 042
  4. GRANULOCYTE COLONY-STIMULATING FACTOR [Concomitant]
     Indication: HAEMATOTOXICITY
     Route: 065
  5. ERYTHROPOIETIN [Concomitant]
     Indication: HAEMATOTOXICITY
     Route: 065

REACTIONS (5)
  - Granulocytopenia [Unknown]
  - Haematotoxicity [Unknown]
  - Infection [Unknown]
  - Alopecia [Unknown]
  - Vomiting [Unknown]
